FAERS Safety Report 4689172-1 (Version None)
Quarter: 2005Q2

REPORT INFORMATION
  Report Type: 
  Country: None (occurrence: None)
  Receive Date: 20050613
  Receipt Date: 20050602
  Transmission Date: 20051028
  Serious: Yes (Other)
  Sender: FDA-Public Use
  Company Number: GB-BRISTOL-MYERS SQUIBB COMPANY-12992137

PATIENT
  Age: 56 Year
  Sex: Male
  Weight: 97 kg

DRUGS (3)
  1. PRAVASTATIN SODIUM [Suspect]
     Indication: HYPERCHOLESTEROLAEMIA
     Route: 048
     Dates: start: 20041125, end: 20050506
  2. WARFARIN SODIUM [Concomitant]
     Dates: start: 20040426
  3. LEVOTHYROXINE SODIUM [Concomitant]
     Dates: start: 20030206

REACTIONS (1)
  - MYOSITIS [None]
